FAERS Safety Report 9436591 (Version 2)
Quarter: 2013Q3

REPORT INFORMATION
  Report Type: Spontaneous
  Country: US (occurrence: US)
  Receive Date: 20130802
  Receipt Date: 20130822
  Transmission Date: 20140515
  Serious: Yes (Life-Threatening)
  Sender: FDA-Public Use
  Company Number: US-GE HEALTHCARE MEDICAL DIAGNOSTICS-OMPQ-PR-1307S-0961

PATIENT
  Age: 77 Year
  Sex: Male
  Weight: 82.63 kg

DRUGS (2)
  1. OMNIPAQUE [Suspect]
     Indication: GANGRENE
     Route: 042
     Dates: start: 20130718, end: 20130718
  2. OMNIPAQUE [Suspect]
     Indication: DIAGNOSTIC PROCEDURE

REACTIONS (2)
  - Oxygen saturation decreased [Unknown]
  - Dyspnoea [Unknown]
